FAERS Safety Report 7753559-0 (Version None)
Quarter: 2011Q3

REPORT INFORMATION
  Report Type: 
  Country: None (occurrence: None)
  Receive Date: 20110915
  Receipt Date: 20110913
  Transmission Date: 20111222
  Serious: Yes (Hospitalization)
  Sender: FDA-Public Use
  Company Number: US-GLAXOSMITHKLINE-A0782846A

PATIENT
  Age: 63 Year
  Sex: Male
  Weight: 106.8 kg

DRUGS (11)
  1. GLUCOTROL [Concomitant]
  2. POTASSIUM CITRATE [Concomitant]
  3. AVANDARYL [Suspect]
     Indication: DIABETES MELLITUS
     Route: 048
     Dates: start: 20020601, end: 20070212
  4. ZANTAC [Concomitant]
  5. SODIUM BICARBONATE [Concomitant]
  6. AVANDAMET [Suspect]
     Indication: DIABETES MELLITUS
     Route: 048
     Dates: start: 20050401, end: 20051001
  7. METFORMIN HYDROCHLORIDE [Concomitant]
  8. AVANDIA [Suspect]
     Indication: DIABETES MELLITUS
     Dosage: 4MG TWICE PER DAY
     Route: 048
     Dates: start: 20000512, end: 20070901
  9. ALLOPURINOL [Concomitant]
  10. UROCIT-K [Concomitant]
  11. LISINOPRIL [Concomitant]

REACTIONS (4)
  - RADIUS FRACTURE [None]
  - CORONARY ARTERY DISEASE [None]
  - HYPERLIPIDAEMIA [None]
  - MYOCARDIAL INFARCTION [None]
